FAERS Safety Report 13994177 (Version 1)
Quarter: 2017Q3

REPORT INFORMATION
  Report Type: Not Available
  Country: US (occurrence: US)
  Receive Date: 20170920
  Receipt Date: 20170920
  Transmission Date: 20171128
  Serious: No
  Sender: FDA-Public Use
  Company Number: US-NEUROCRINE BIOSCIENCES INC.-2017NBI00542

PATIENT
  Age: 35 Year
  Sex: Female

DRUGS (7)
  1. BENZOTROPINE [Concomitant]
     Active Substance: BENZTROPINE
  2. HALOPERIDOL. [Concomitant]
     Active Substance: HALOPERIDOL
  3. RANITIDINE. [Concomitant]
     Active Substance: RANITIDINE
  4. INGREZZA [Suspect]
     Active Substance: VALBENAZINE
     Route: 048
     Dates: start: 20170705, end: 20170725
  5. DIVALPROEX [Concomitant]
     Active Substance: DIVALPROEX SODIUM
  6. INGREZZA [Suspect]
     Active Substance: VALBENAZINE
     Indication: PRODUCT USED FOR UNKNOWN INDICATION
     Route: 048
     Dates: end: 20170704
  7. LISINOPRIL. [Concomitant]
     Active Substance: LISINOPRIL

REACTIONS (2)
  - Confusional state [Unknown]
  - Drooling [Unknown]

NARRATIVE: CASE EVENT DATE: 20170719
